FAERS Safety Report 23736164 (Version 1)
Quarter: 2024Q2

REPORT INFORMATION
  Report Type: Spontaneous
  Country: FR (occurrence: FR)
  Receive Date: 20240412
  Receipt Date: 20240412
  Transmission Date: 20240715
  Serious: Yes (Other)
  Sender: FDA-Public Use
  Company Number: FR-GRUNENTHAL-2024-118621

PATIENT
  Age: 37 Year
  Sex: Female
  Weight: 90 kg

DRUGS (4)
  1. QUTENZA [Suspect]
     Active Substance: CAPSAICIN
     Indication: Product used for unknown indication
     Dosage: 0.5 DOSAGE FORM, ONCE
     Route: 003
     Dates: start: 20240327, end: 20240327
  2. QUTENZA [Suspect]
     Active Substance: CAPSAICIN
     Dosage: 1 DOSAGE FORM, ONCE
     Route: 003
     Dates: start: 20240125, end: 20240125
  3. ACETAMINOPHEN [Concomitant]
     Active Substance: ACETAMINOPHEN
     Indication: Product used for unknown indication
     Dosage: UNK
     Route: 065
  4. IBUPROFEN [Concomitant]
     Active Substance: IBUPROFEN
     Indication: Product used for unknown indication
     Dosage: UNK
     Route: 065

REACTIONS (4)
  - Application site burn [Unknown]
  - Product use issue [Unknown]
  - Intentional product misuse [Unknown]
  - Burns second degree [Unknown]

NARRATIVE: CASE EVENT DATE: 20240327
